FAERS Safety Report 25101427 (Version 2)
Quarter: 2025Q3

REPORT INFORMATION
  Report Type: Spontaneous
  Country: GB (occurrence: GB)
  Receive Date: 20250320
  Receipt Date: 20250929
  Transmission Date: 20251021
  Serious: Yes (Hospitalization)
  Sender: Steriscience PTE
  Company Number: None

PATIENT
  Age: 41 Year
  Sex: Female

DRUGS (4)
  1. MEROPENEM [Suspect]
     Active Substance: MEROPENEM
     Indication: Embolic cerebral infarction
     Dosage: 500 MILLIGRAM, Q6H
     Route: 042
  2. MEROPENEM [Suspect]
     Active Substance: MEROPENEM
     Indication: Encephalitis
     Dosage: 2 GRAM, Q8H
     Route: 042
  3. MEROPENEM [Suspect]
     Active Substance: MEROPENEM
     Indication: Klebsiella infection
  4. MEROPENEM [Suspect]
     Active Substance: MEROPENEM
     Indication: Liver abscess

REACTIONS (4)
  - Toxic encephalopathy [Unknown]
  - Acute kidney injury [None]
  - Leukopenia [None]
  - Off label use [Unknown]
